FAERS Safety Report 7207264-X (Version None)
Quarter: 2011Q1

REPORT INFORMATION
  Report Type: 
  Country: None (occurrence: None)
  Receive Date: 20110103
  Receipt Date: 20101230
  Transmission Date: 20110831
  Serious: Yes (Hospitalization)
  Sender: FDA-Public Use
  Company Number: JP-BRISTOL-MYERS SQUIBB COMPANY-15463938

PATIENT
  Age: 77 Year
  Sex: Female

DRUGS (1)
  1. PROCAINAMIDE HCL [Suspect]
     Indication: ATRIAL FIBRILLATION
     Route: 042

REACTIONS (1)
  - TORSADE DE POINTES [None]
